FAERS Safety Report 10487709 (Version 3)
Quarter: 2014Q4

REPORT INFORMATION
  Report Type: Report from Study
  Country: MX (occurrence: MX)
  Receive Date: 20141001
  Receipt Date: 20141217
  Transmission Date: 20150528
  Serious: Yes (Other)
  Sender: FDA-Public Use
  Company Number: PHHY2014MX128581

PATIENT
  Age: 83 Year
  Sex: Female
  Weight: 75 kg

DRUGS (8)
  1. SPIRIVA [Concomitant]
     Active Substance: TIOTROPIUM BROMIDE MONOHYDRATE
     Indication: ASTHMA
     Dosage: 1 DF, QD
     Route: 065
  2. MIFLONIDE [Concomitant]
     Active Substance: BUDESONIDE
     Indication: OFF LABEL USE
     Dosage: 1 DF, QD
     Route: 055
  3. MIFLONIDE [Concomitant]
     Active Substance: BUDESONIDE
     Indication: ASTHMA
     Dosage: 2 DF, QD
     Route: 055
  4. ONBRIZE [Concomitant]
     Active Substance: INDACATEROL MALEATE
     Indication: ASTHMA
     Dosage: 1 DF, QD
     Route: 065
     Dates: end: 201409
  5. EXFORGE [Suspect]
     Active Substance: AMLODIPINE BESYLATE\VALSARTAN
     Indication: HYPERTENSION
     Dosage: 1 DF, QD
     Route: 065
     Dates: start: 2011
  6. COMBIVENT [Concomitant]
     Active Substance: ALBUTEROL SULFATE\IPRATROPIUM BROMIDE
     Indication: PRODUCT USED FOR UNKNOWN INDICATION
     Route: 065
  7. ONBRIZE [Concomitant]
     Active Substance: INDACATEROL MALEATE
     Indication: OFF LABEL USE
  8. FLUTICORT [Concomitant]
     Indication: PRODUCT USED FOR UNKNOWN INDICATION
     Route: 065

REACTIONS (5)
  - Overweight [Not Recovered/Not Resolved]
  - Bronchitis chronic [Unknown]
  - Drug ineffective [Unknown]
  - Dry throat [Recovered/Resolved]
  - Pneumonia [Recovering/Resolving]
